FAERS Safety Report 12885243 (Version 1)
Quarter: 2016Q4

REPORT INFORMATION
  Report Type: Report from Study
  Country: US (occurrence: US)
  Receive Date: 20161026
  Receipt Date: 20161026
  Transmission Date: 20170207
  Serious: Yes (Death)
  Sender: FDA-Public Use
  Company Number: PHEH2016US027705

PATIENT
  Age: 52 Year

DRUGS (1)
  1. GLEEVEC [Suspect]
     Active Substance: IMATINIB MESYLATE
     Indication: PRODUCT USED FOR UNKNOWN INDICATION
     Dosage: (ONCE DAILY)400 MG, QD
     Route: 048
     Dates: start: 20151204

REACTIONS (1)
  - Death [Fatal]

NARRATIVE: CASE EVENT DATE: 20161024
